FAERS Safety Report 8384869-4 (Version None)
Quarter: 2012Q2

REPORT INFORMATION
  Report Type: 
  Country: None (occurrence: None)
  Receive Date: 20120524
  Receipt Date: 20120511
  Transmission Date: 20120825
  Serious: Yes (Hospitalization)
  Sender: FDA-Public Use
  Company Number: FR-ELI_LILLY_AND_COMPANY-FR201205004599

PATIENT
  Age: 40 Year
  Sex: Male

DRUGS (2)
  1. DEPAKOTE [Concomitant]
     Dosage: UNK
  2. ZYPREXA [Suspect]
     Dosage: 40 MG, QD
     Route: 048

REACTIONS (4)
  - OVERDOSE [None]
  - MANIA [None]
  - AGGRESSION [None]
  - PSYCHIATRIC DECOMPENSATION [None]
